FAERS Safety Report 8165597-7 (Version None)
Quarter: 2012Q1

REPORT INFORMATION
  Report Type: 
  Country: None (occurrence: None)
  Receive Date: 20120223
  Receipt Date: 20120223
  Transmission Date: 20120608
  Serious: Yes (Death)
  Sender: FDA-Public Use
  Company Number: None

PATIENT
  Sex: Male
  Weight: 68.0396 kg

DRUGS (1)
  1. TRANDATE [Suspect]
     Indication: BLOOD PRESSURE
     Dosage: 80 MG

REACTIONS (5)
  - CARDIAC ARREST [None]
  - HIV INFECTION [None]
  - BLOOD PRESSURE INCREASED [None]
  - COMA [None]
  - INAPPROPRIATE SCHEDULE OF DRUG ADMINISTRATION [None]
